FAERS Safety Report 22640655 (Version 1)
Quarter: 2023Q2

REPORT INFORMATION
  Report Type: Spontaneous
  Country: US (occurrence: US)
  Receive Date: 20230626
  Receipt Date: 20230626
  Transmission Date: 20230721
  Serious: Yes (Death, Hospitalization)
  Sender: FDA-Public Use
  Company Number: US-MYLANLABS-2023M1066108

PATIENT
  Age: 59 Year
  Sex: Female

DRUGS (6)
  1. DOLUTEGRAVIR [Suspect]
     Active Substance: DOLUTEGRAVIR
     Indication: Kaposi^s sarcoma AIDS related
     Dosage: UNK, DRUG WAS CONTINUED BUT LATER PATIENT DIED
     Route: 065
  2. EMTRICITABINE [Suspect]
     Active Substance: EMTRICITABINE
     Indication: Kaposi^s sarcoma AIDS related
     Dosage: UNK, DRUG WAS CONTINUED BUT LATER PATIENT DIED
     Route: 065
  3. TENOFOVIR ALAFENAMIDE [Suspect]
     Active Substance: TENOFOVIR ALAFENAMIDE
     Indication: Kaposi^s sarcoma AIDS related
     Dosage: UNK, DRUG WAS CONTINUED BUT LATER PATIENT DIED
     Route: 065
  4. Immunoglobulin [Concomitant]
     Indication: Haemophagocytic lymphohistiocytosis
     Dosage: 1 GRAM PER KILOGRAM (DOSE: 1G/KG)
     Route: 042
  5. FLUCONAZOLE [Concomitant]
     Active Substance: FLUCONAZOLE
     Indication: Infection prophylaxis
     Dosage: UNK
     Route: 065
  6. SULFAMETHOXAZOLE\TRIMETHOPRIM [Concomitant]
     Active Substance: SULFAMETHOXAZOLE\TRIMETHOPRIM
     Indication: Infection prophylaxis
     Dosage: UNK
     Route: 065

REACTIONS (3)
  - Haemophagocytic lymphohistiocytosis [Fatal]
  - Immune reconstitution inflammatory syndrome [Fatal]
  - Multiple organ dysfunction syndrome [Fatal]
